FAERS Safety Report 4746722-4 (Version None)
Quarter: 2005Q3

REPORT INFORMATION
  Report Type: 
  Country: None (occurrence: None)
  Receive Date: 20050817
  Receipt Date: 20050629
  Transmission Date: 20060218
  Serious: Yes (Other)
  Sender: FDA-Public Use
  Company Number: FR-GLAXOSMITHKLINE-B0387385A

PATIENT
  Age: 56 Year
  Sex: Male
  Weight: 106 kg

DRUGS (7)
  1. AVANDAMET [Suspect]
     Dosage: 4MG PER DAY
     Route: 048
     Dates: start: 20041001, end: 20041101
  2. DIAMICRON [Concomitant]
  3. ASPEGIC 325 [Concomitant]
  4. TAHOR [Concomitant]
  5. ACUITEL [Concomitant]
  6. GLUCOPHAGE [Concomitant]
  7. BITILDIEM [Concomitant]
     Dosage: 120MG PER DAY

REACTIONS (2)
  - VISION BLURRED [None]
  - VISUAL ACUITY REDUCED [None]
